FAERS Safety Report 9274517 (Version 3)
Quarter: 2014Q4

REPORT INFORMATION
  Report Type: Report from Study
  Country: DE (occurrence: DE)
  Receive Date: 20130507
  Receipt Date: 20141029
  Transmission Date: 20150529
  Serious: Yes (Death, Hospitalization, Disabling, Other)
  Sender: FDA-Public Use
  Company Number: DE-ROCHE-1221477

PATIENT
  Sex: Male
  Weight: 90 kg

DRUGS (1)
  1. RANIBIZUMAB [Suspect]
     Active Substance: RANIBIZUMAB
     Indication: AGE-RELATED MACULAR DEGENERATION
     Dosage: LAST DOSE:25/MAR/2013
     Route: 050
     Dates: start: 20121115

REACTIONS (3)
  - Retinal haemorrhage [Not Recovered/Not Resolved]
  - Bronchial carcinoma [Fatal]
  - Intraocular pressure increased [Unknown]

NARRATIVE: CASE EVENT DATE: 20130328
